FAERS Safety Report 6355535-1 (Version None)
Quarter: 2009Q3

REPORT INFORMATION
  Report Type: 
  Country: None (occurrence: None)
  Receive Date: 20090914
  Receipt Date: 20090909
  Transmission Date: 20100115
  Serious: Yes (Death, Hospitalization, Other)
  Sender: FDA-Public Use
  Company Number: PHHY2009US38745

PATIENT

DRUGS (4)
  1. GLEEVEC [Suspect]
     Indication: CHRONIC MYELOID LEUKAEMIA
     Dosage: 400 MG DAILY
     Route: 065
  2. HYPER-CVAD [Concomitant]
     Route: 065
  3. RITUXIMAB [Concomitant]
     Route: 065
  4. DASATINIB [Concomitant]
     Route: 065

REACTIONS (8)
  - B PRECURSOR TYPE ACUTE LEUKAEMIA [None]
  - LEUKAEMIC INFILTRATION BRAIN [None]
  - LYMPHADENOPATHY [None]
  - PANCYTOPENIA [None]
  - PNEUMONIA [None]
  - SEPTIC SHOCK [None]
  - SPLENOMEGALY [None]
  - VISUAL IMPAIRMENT [None]
